FAERS Safety Report 8887492 (Version 1)
Quarter: 2012Q4

REPORT INFORMATION
  Report Type: Spontaneous
  Country: CZ (occurrence: None)
  Receive Date: 20121031
  Receipt Date: 20121031
  Transmission Date: 20130627
  Serious: Yes (Other)
  Sender: FDA-Public Use
  Company Number: CZ-025165

PATIENT

DRUGS (4)
  1. BUSULFAN [Suspect]
     Indication: STEM CELL TRANSPLANT
     Dosage: 4 mg/kg/day (4 mg/kg, 1 in 1 Days), Oral
     Route: 048
  2. BUSULFAN [Suspect]
     Indication: STEM CELL TRANSPLANT
  3. FLUDARABINE [Suspect]
     Indication: STEM CELL TRANSPLANT
     Dosage: 30 mg/m2/day on days -10 to -5 (30 mg/m2, 1 in 1 Days), Intravenous (not otherwise specified)
     Route: 042
  4. ANTITHYMOCYTE IMMUNOGLOBULIN [Suspect]
     Indication: STEM CELL TRANSPLANT
     Dosage: 10 mg/kg/day (10 mg/kg, 1 in 1 days), unknown

REACTIONS (1)
  - Mucosal inflammation [None]
